FAERS Safety Report 5004456-5 (Version None)
Quarter: 2006Q2

REPORT INFORMATION
  Report Type: 
  Country: None (occurrence: None)
  Receive Date: 20060517
  Receipt Date: 20060505
  Transmission Date: 20061013
  Serious: Yes (Hospitalization)
  Sender: FDA-Public Use
  Company Number: IT-ROCHE-447126

PATIENT
  Age: 71 Year
  Sex: Female

DRUGS (9)
  1. TICLID [Suspect]
     Route: 048
     Dates: start: 20060120, end: 20060220
  2. ROSUVASTATIN [Concomitant]
     Indication: HYPERCHOLESTEROLAEMIA
     Route: 048
     Dates: start: 20060120
  3. DILATREND [Concomitant]
     Indication: HYPERTENSION
     Route: 048
     Dates: start: 20060120
  4. NAPRILENE [Concomitant]
     Indication: HYPERTENSION
     Route: 048
  5. LASIX [Concomitant]
     Route: 048
     Dates: start: 20060120
  6. ESAPENT [Concomitant]
     Indication: HYPERTRIGLYCERIDAEMIA
     Route: 048
     Dates: start: 20060120
  7. MINITRAN [Concomitant]
     Indication: CARDIOVASCULAR DISORDER
     Route: 062
     Dates: start: 20060120
  8. ACTRAPID [Concomitant]
     Indication: DIABETES MELLITUS
     Route: 058
     Dates: start: 20060120
  9. HUMULIN L [Concomitant]
     Indication: DIABETES MELLITUS
     Route: 058
     Dates: start: 20060120

REACTIONS (6)
  - ASTHENIA [None]
  - HAEMOLYTIC ANAEMIA [None]
  - INJECTION SITE HAEMORRHAGE [None]
  - INTRAVASCULAR HAEMOLYSIS [None]
  - PLATELET COUNT DECREASED [None]
  - THROMBOTIC MICROANGIOPATHY [None]
